FAERS Safety Report 20641030 (Version 1)
Quarter: 2022Q1

REPORT INFORMATION
  Report Type: Spontaneous
  Country: GB (occurrence: GB)
  Receive Date: 20220327
  Receipt Date: 20220327
  Transmission Date: 20220424
  Serious: Yes (Death, Other)
  Sender: FDA-Public Use
  Company Number: None

PATIENT
  Age: 84 Year
  Sex: Male

DRUGS (1)
  1. ALTEPLASE [Suspect]
     Active Substance: ALTEPLASE
     Indication: Thrombolysis
     Route: 042

REACTIONS (5)
  - Death [Fatal]
  - Aortic dissection [Unknown]
  - Haemorrhage [Unknown]
  - Syncope [Unknown]
  - Contraindication to medical treatment [Unknown]

NARRATIVE: CASE EVENT DATE: 20210208
